FAERS Safety Report 4375153-4 (Version None)
Quarter: 2004Q2

REPORT INFORMATION
  Report Type: 
  Country: None (occurrence: None)
  Receive Date: 20040603
  Receipt Date: 20040518
  Transmission Date: 20050107
  Serious: Yes (Death, Hospitalization)
  Sender: FDA-Public Use
  Company Number: JP-JNJFOC-20040306777

PATIENT
  Age: 81 Year
  Sex: Male

DRUGS (7)
  1. FENTANYL [Suspect]
     Indication: CANCER PAIN
     Dosage: 7.5 MG, 1 IN 3 DAY, TRANSDERMAL; SEE IMAGE
     Route: 062
     Dates: start: 20040201, end: 20040218
  2. FENTANYL [Suspect]
     Indication: CANCER PAIN
     Dosage: 7.5 MG, 1 IN 3 DAY, TRANSDERMAL; SEE IMAGE
     Route: 062
     Dates: start: 20040219, end: 20040221
  3. FENTANYL [Suspect]
     Indication: CANCER PAIN
     Dosage: 7.5 MG, 1 IN 3 DAY, TRANSDERMAL; SEE IMAGE
     Route: 062
     Dates: start: 20040222, end: 20040224
  4. METOCLOPRAMIDE [Concomitant]
  5. MORPHINE HYDROCHLORIDE [Concomitant]
  6. PROCHLOPERAZINE [Concomitant]
  7. NEO-MINOPHAGEN C (GLYCYRRHIZIC ACID, AMMONIUM SALT) [Concomitant]

REACTIONS (6)
  - ALANINE AMINOTRANSFERASE INCREASED [None]
  - ASPARTATE AMINOTRANSFERASE INCREASED [None]
  - BLOOD ALKALINE PHOSPHATASE INCREASED [None]
  - CONSTIPATION [None]
  - GAMMA-GLUTAMYLTRANSFERASE INCREASED [None]
  - GENERAL PHYSICAL CONDITION ABNORMAL [None]
